FAERS Safety Report 21033844 (Version 1)
Quarter: 2022Q3

REPORT INFORMATION
  Report Type: Report from Study
  Country: US (occurrence: None)
  Receive Date: 20220701
  Receipt Date: 20220701
  Transmission Date: 20221027
  Serious: Yes (Other)
  Sender: FDA-Public Use
  Company Number: US-Merck Healthcare KGaA-9332749

PATIENT
  Age: 58 Year
  Sex: Female

DRUGS (3)
  1. MAVENCLAD [Suspect]
     Active Substance: CLADRIBINE
     Indication: Multiple sclerosis
     Dosage: YEAR ONE MONTH ONE THERAPY
     Route: 048
     Dates: start: 20210616, end: 20210620
  2. MAVENCLAD [Suspect]
     Active Substance: CLADRIBINE
     Dosage: YEAR ONE MONTH TWO THERAPY
     Route: 048
     Dates: start: 20210713, end: 20210717
  3. MAVENCLAD [Suspect]
     Active Substance: CLADRIBINE
     Dosage: YEAR TWO MONTH ONE THERAPY
     Route: 048
     Dates: start: 20220621

REACTIONS (7)
  - Dizziness [Recovered/Resolved]
  - Syncope [Recovered/Resolved]
  - Fall [Unknown]
  - Haemorrhage [Unknown]
  - Contusion [Unknown]
  - Lip injury [Unknown]
  - Headache [Unknown]

NARRATIVE: CASE EVENT DATE: 20220601
